FAERS Safety Report 8589411-0 (Version None)
Quarter: 2012Q3

REPORT INFORMATION
  Report Type: 
  Country: None (occurrence: None)
  Receive Date: 20120813
  Receipt Date: 20120803
  Transmission Date: 20120928
  Serious: Yes (Other)
  Sender: FDA-Public Use
  Company Number: BR-ASTRAZENECA-2012SE56315

PATIENT
  Age: 57 Year

DRUGS (6)
  1. BISOPROLOL [Concomitant]
  2. ATORVASTATIN [Concomitant]
     Route: 048
  3. ASPIRIN [Concomitant]
     Route: 048
  4. CLOPIDOGREL [Concomitant]
  5. VASTAREL MR [Concomitant]
     Route: 048
  6. BRILINTA [Suspect]
     Route: 048

REACTIONS (2)
  - ANAEMIA [None]
  - GASTRIC ULCER [None]
